FAERS Safety Report 13007433 (Version 1)
Quarter: 2016Q4

REPORT INFORMATION
  Report Type: Spontaneous
  Country: CH (occurrence: CH)
  Receive Date: 20161207
  Receipt Date: 20161207
  Transmission Date: 20170207
  Serious: Yes (Hospitalization)
  Sender: FDA-Public Use
  Company Number: CH-PFIZER INC-2016547002

PATIENT
  Age: 76 Year
  Sex: Male
  Weight: 60 kg

DRUGS (8)
  1. TRITTICO [Suspect]
     Active Substance: TRAZODONE HYDROCHLORIDE
     Dosage: 1 DF, SINGLE
     Route: 048
     Dates: start: 20160417, end: 20160417
  2. CO-APROVEL [Concomitant]
     Active Substance: HYDROCHLOROTHIAZIDE\IRBESARTAN
     Dosage: 1 DF, 1X/DAY
     Route: 048
  3. QUETIAPIN SANDOZ [Suspect]
     Active Substance: QUETIAPINE
     Dosage: 12.5 MG, 1X/DAY
     Route: 048
     Dates: end: 201604
  4. ZOLOFT [Suspect]
     Active Substance: SERTRALINE HYDROCHLORIDE
     Dosage: 50 MG, 1X/DAY
     Route: 048
     Dates: end: 201604
  5. PLAVIX [Concomitant]
     Active Substance: CLOPIDOGREL BISULFATE
     Dosage: 75 MG, 1X/DAY
     Route: 048
  6. SORTIS [Concomitant]
     Active Substance: ATORVASTATIN
     Dosage: 80 MG, 1X/DAY
     Route: 048
  7. EDRONAX [Concomitant]
     Active Substance: REBOXETINE MESYLATE
     Dosage: 4 MG, 1X/DAY
     Route: 048
  8. BELOC /00376903/ [Concomitant]
     Active Substance: METOPROLOL TARTRATE
     Dosage: 25 MG, 1X/DAY
     Route: 048

REACTIONS (4)
  - Fall [Recovered/Resolved]
  - Muscular weakness [Recovered/Resolved]
  - Intentional product misuse [Recovered/Resolved]
  - Electrocardiogram QT prolonged [Recovered/Resolved]

NARRATIVE: CASE EVENT DATE: 20160417
